FAERS Safety Report 23239416 (Version 1)
Quarter: 2023Q4

REPORT INFORMATION
  Report Type: Spontaneous
  Country: US (occurrence: US)
  Receive Date: 20231129
  Receipt Date: 20231129
  Transmission Date: 20240110
  Serious: Yes (Other)
  Sender: FDA-Public Use
  Company Number: US-AstraZeneca-2023A222021

PATIENT
  Age: 75 Year
  Sex: Female

DRUGS (21)
  1. BUDESONIDE [Suspect]
     Active Substance: BUDESONIDE
  2. FASENRA [Suspect]
     Active Substance: BENRALIZUMAB
     Route: 058
  3. BREZTRI [Suspect]
     Active Substance: BUDESONIDE\FORMOTEROL\GLYCOPYRROLATE
     Indication: Chronic obstructive pulmonary disease
     Dosage: 2 PUFFS, RESPIRATORY INHALATION
     Route: 055
  4. BREZTRI [Suspect]
     Active Substance: BUDESONIDE\FORMOTEROL\GLYCOPYRROLATE
     Indication: Asthma
     Dosage: 2 PUFFS, RESPIRATORY INHALATION
     Route: 055
  5. PRILOSEC [Suspect]
     Active Substance: OMEPRAZOLE MAGNESIUM
  6. ALENDRONATE [Concomitant]
     Active Substance: ALENDRONATE SODIUM
  7. ALBUTEROL [Concomitant]
     Active Substance: ALBUTEROL
  8. SINGULAIR [Concomitant]
     Active Substance: MONTELUKAST SODIUM
  9. PREDNISONE [Concomitant]
     Active Substance: PREDNISONE
  10. LORATADINE [Concomitant]
     Active Substance: LORATADINE
     Dosage: DAILY DOSE: 10 MILLIGRAM
  11. HYDROCHLOROTHIAZIDE [Concomitant]
     Active Substance: HYDROCHLOROTHIAZIDE
     Dosage: DAILY DOSE: 25 MILLIGRAM
  12. XANAX [Concomitant]
     Active Substance: ALPRAZOLAM
     Dosage: 0.25
  13. CELECOXIB [Concomitant]
     Active Substance: CELECOXIB
  14. FISH OIL [Concomitant]
     Active Substance: FISH OIL
     Dosage: DAILY DOSE: 1000 MILLIGRAM
  15. CALCIUM\VITAMIN D [Concomitant]
     Active Substance: CALCIUM\VITAMIN D
     Dosage: TID?DAILY DOSE: 1800 MILLIGRAM
  16. MAGNESIUM [Concomitant]
     Active Substance: MAGNESIUM
     Dosage: DAILY DOSE: 250 MILLIGRAM
  17. FOLIC ACID [Concomitant]
     Active Substance: FOLIC ACID
     Dosage: DAILY DOSE: 400 MILLIGRAM
  18. NIACIN [Concomitant]
     Active Substance: NIACIN
     Dosage: DAILY DOSE: 250 MILLIGRAM
  19. VITAMIN D3 [Concomitant]
     Active Substance: CHOLECALCIFEROL
     Dosage: TID?DAILY DOSE: 3000 MILLIGRAM
  20. GLUCOSAMINE [Concomitant]
     Active Substance: GLUCOSAMINE
     Dosage: TID?DAILY DOSE: 1500 MILLIGRAM
  21. FUROSEMIDE [Concomitant]
     Active Substance: FUROSEMIDE
     Dosage: DAILY DOSE: 40 MILLIGRAM

REACTIONS (1)
  - Foot fracture [Unknown]

NARRATIVE: CASE EVENT DATE: 20230812
